FAERS Safety Report 10957849 (Version 1)
Quarter: 2015Q1

REPORT INFORMATION
  Report Type: Spontaneous
  Country: US (occurrence: US)
  Receive Date: 20150326
  Receipt Date: 20150326
  Transmission Date: 20150721
  Serious: Yes (Death)
  Sender: FDA-Public Use
  Company Number: US-CIPLA LTD.-2015US02415

PATIENT

DRUGS (6)
  1. CITALOPRAM [Suspect]
     Active Substance: CITALOPRAM HYDROBROMIDE
  2. ALPRAZOLAM. [Suspect]
     Active Substance: ALPRAZOLAM
  3. OXYMORPHONE [Suspect]
     Active Substance: OXYMORPHONE
  4. COCAINE [Suspect]
     Active Substance: COCAINE
  5. HEROIN [Suspect]
     Active Substance: DIACETYLMORPHINE
  6. CODEINE [Suspect]
     Active Substance: CODEINE

REACTIONS (1)
  - Drug abuse [Fatal]
